FAERS Safety Report 23341972 (Version 1)
Quarter: 2023Q4

REPORT INFORMATION
  Report Type: Spontaneous
  Country: US (occurrence: US)
  Receive Date: 20231227
  Receipt Date: 20231227
  Transmission Date: 20240109
  Serious: No
  Sender: FDA-Public Use
  Company Number: US-SA-SAC20231218001557

PATIENT
  Sex: Female
  Weight: 58.96 kg

DRUGS (6)
  1. DUPIXENT [Suspect]
     Active Substance: DUPILUMAB
     Indication: Eosinophilic oesophagitis
     Dosage: 300 MG, QW
     Route: 058
  2. FEMRING [Concomitant]
     Active Substance: ESTRADIOL ACETATE
     Dosage: 0.1MG/2
  3. OMEPRAZOLE [Concomitant]
     Active Substance: OMEPRAZOLE
     Dosage: UNK
  4. FLUCELVAX QUADRIVALENT NOS [Concomitant]
     Active Substance: INFLUENZA A VIRUS A/BRISBANE/10/2010 (H1N1) ANTIGEN (MDCK CELL DERIVED, PROPIOLACTONE INACTIVATED)\I
     Dosage: 2023-20 60MCG
     Dates: start: 2023
  5. PROGESTERONE [Concomitant]
     Active Substance: PROGESTERONE
     Dosage: UNK
  6. SPIKEVAX [Concomitant]
     Dosage: 2023-2024 50 MCG
     Dates: start: 2023

REACTIONS (3)
  - Abdominal pain [Unknown]
  - COVID-19 [Unknown]
  - Rash [Unknown]
